FAERS Safety Report 8549555-6 (Version None)
Quarter: 2012Q3

REPORT INFORMATION
  Report Type: 
  Country: None (occurrence: None)
  Receive Date: 20120730
  Receipt Date: 20120726
  Transmission Date: 20120928
  Serious: Yes (Other)
  Sender: FDA-Public Use
  Company Number: US-PFIZER INC-2012182619

PATIENT
  Sex: Female
  Weight: 61.224 kg

DRUGS (4)
  1. CELEBREX [Suspect]
     Indication: ARTHRITIS
     Dosage: 200 MG, DAILY
     Dates: end: 20120701
  2. CELEBREX [Suspect]
     Indication: FIBROMYALGIA
  3. ZOLOFT [Suspect]
     Indication: DEPRESSION
     Dosage: 100 MG, DAILY
     Dates: end: 20120701
  4. ATACAND [Concomitant]
     Indication: HYPERTENSION
     Dosage: 8 MG, DAILY

REACTIONS (1)
  - BONE CANCER METASTATIC [None]
